FAERS Safety Report 15348775 (Version 1)
Quarter: 2018Q3

REPORT INFORMATION
  Report Type: Report from Study
  Country: CA (occurrence: CA)
  Receive Date: 20180904
  Receipt Date: 20180904
  Transmission Date: 20181010
  Serious: Yes (Hospitalization, Other)
  Sender: FDA-Public Use
  Company Number: PHHY2017CA141663

PATIENT
  Age: 75 Year
  Sex: Female

DRUGS (3)
  1. ENTRESTO [Suspect]
     Active Substance: SACUBITRIL\VALSARTAN
     Indication: CARDIAC FAILURE
     Dosage: 1 DF (97 MG OF SACUBITRIL/ 103 MG OF VALSARTAN), BID
     Route: 048
     Dates: start: 201704
  2. ENTRESTO [Suspect]
     Active Substance: SACUBITRIL\VALSARTAN
     Dosage: 1 DF (24 MG OF SACUBITRIL/ 26 MG OF VALSARTAN), BID
     Route: 048
  3. ENTRESTO [Suspect]
     Active Substance: SACUBITRIL\VALSARTAN
     Dosage: 1 DF (24/26 MG IN THE MORNING + 49/51 MG IN THE EVENING), BID
     Route: 048

REACTIONS (11)
  - Blood pressure diastolic decreased [Unknown]
  - Blood creatinine increased [Recovered/Resolved]
  - Osteoarthritis [Unknown]
  - Asthenia [Unknown]
  - Blood creatinine increased [Unknown]
  - Fall [Unknown]
  - Blood potassium decreased [Unknown]
  - Hypotension [Unknown]
  - Fluid retention [Recovering/Resolving]
  - Dizziness [Unknown]
  - Head injury [Unknown]

NARRATIVE: CASE EVENT DATE: 2017
